FAERS Safety Report 8309576-5 (Version None)
Quarter: 2012Q2

REPORT INFORMATION
  Report Type: 
  Country: None (occurrence: None)
  Receive Date: 20120420
  Receipt Date: 20120406
  Transmission Date: 20120825
  Serious: Yes (Hospitalization)
  Sender: FDA-Public Use
  Company Number: ACO_29604_2012

PATIENT
  Age: 67 Year
  Sex: Female

DRUGS (6)
  1. THIAZIDE (HYDROCHLOROTHIAZIDE) [Concomitant]
  2. ATACAND [Concomitant]
  3. CELEBREX [Concomitant]
  4. FAMPRIDINE-SR (FAMPRIDINE) TABLET [Suspect]
     Indication: MULTIPLE SCLEROSIS
     Dosage: 10 MG, BID, ORAL
     Route: 048
     Dates: start: 20070927
  5. NAPROXEN [Concomitant]
  6. CHLORTHALIDONE [Concomitant]

REACTIONS (10)
  - UMBILICAL HERNIA [None]
  - OVARIAN DISORDER [None]
  - EOSINOPHIL COUNT DECREASED [None]
  - UTERINE LEIOMYOMA [None]
  - FALLOPIAN TUBE DISORDER [None]
  - URINARY TRACT INFECTION [None]
  - ENDOMETRIAL CANCER STAGE I [None]
  - ADENOMYOSIS [None]
  - BASOPHIL COUNT INCREASED [None]
  - BLOOD CALCIUM DECREASED [None]
